FAERS Safety Report 6372551-4 (Version None)
Quarter: 2009Q3

REPORT INFORMATION
  Report Type: 
  Country: None (occurrence: None)
  Receive Date: 20090924
  Receipt Date: 20080925
  Transmission Date: 20100115
  Serious: No
  Sender: FDA-Public Use
  Company Number: US-ASTRAZENECA-2008UW20340

PATIENT
  Age: 55 Year
  Sex: Female

DRUGS (5)
  1. SEROQUEL [Suspect]
     Route: 048
  2. SEROQUEL [Suspect]
     Route: 048
  3. CLONOPIN [Concomitant]
  4. ATIVAN [Concomitant]
  5. COGENTIN [Concomitant]

REACTIONS (1)
  - PAIN IN EXTREMITY [None]
